FAERS Safety Report 4737041-0 (Version None)
Quarter: 2005Q3

REPORT INFORMATION
  Report Type: 
  Country: None (occurrence: None)
  Receive Date: 20050808
  Receipt Date: 20050729
  Transmission Date: 20060218
  Serious: Yes (Hospitalization)
  Sender: FDA-Public Use
  Company Number: CH-NOVOPROD-245945

PATIENT
  Age: 55 Year
  Sex: Male

DRUGS (6)
  1. ACTRAPID [Suspect]
     Indication: ILL-DEFINED DISORDER
     Route: 042
     Dates: start: 20050401, end: 20050401
  2. SINTROM [Concomitant]
     Route: 048
     Dates: start: 20031201
  3. CALCIUM SANDOZ [Concomitant]
     Dosage: 500 MG, UNK
     Route: 048
  4. PREDNISONE [Concomitant]
     Dosage: 20 MG, UNK
     Route: 048
  5. LEXOTANIL [Concomitant]
     Dosage: 1.5 MG, UNK
     Route: 048
  6. FOSAMAX [Concomitant]
     Dosage: 70 MG PER WEEK
     Route: 048

REACTIONS (4)
  - HYPOGLYCAEMIA [None]
  - HYPOKALAEMIA [None]
  - MEDICATION ERROR [None]
  - WRONG DRUG ADMINISTERED [None]
